FAERS Safety Report 4657859-2 (Version None)
Quarter: 2005Q2

REPORT INFORMATION
  Report Type: 
  Country: None (occurrence: None)
  Receive Date: 20050503
  Receipt Date: 20050106
  Transmission Date: 20051028
  Serious: Yes (Hospitalization)
  Sender: FDA-Public Use
  Company Number: RB-1199-2005

PATIENT
  Age: 31 Year
  Sex: Male
  Weight: 95.2554 kg

DRUGS (6)
  1. SUBUTEX [Suspect]
     Indication: DRUG DEPENDENCE
     Dosage: 8 MG TID SL
     Route: 060
     Dates: start: 20050104
  2. ALLOPURINOL [Concomitant]
  3. SINGULAIR [Concomitant]
  4. ALUPENT [Concomitant]
  5. ZOFRAN [Concomitant]
  6. KLONOPIN [Concomitant]

REACTIONS (5)
  - DIZZINESS [None]
  - DRUG WITHDRAWAL SYNDROME [None]
  - NAUSEA [None]
  - PAIN IN EXTREMITY [None]
  - URINARY RETENTION [None]
